FAERS Safety Report 9460290 (Version 2)
Quarter: 2014Q2

REPORT INFORMATION
  Report Type: Report from Study
  Country: US (occurrence: US)
  Receive Date: 20130815
  Receipt Date: 20140501
  Transmission Date: 20141212
  Serious: No
  Sender: FDA-Public Use
  Company Number: US-BAXTER-2013BAX013135

PATIENT
  Sex: 0

DRUGS (2)
  1. ADVATE [Suspect]
     Indication: FACTOR VIII DEFICIENCY
     Route: 065
  2. ADVATE [Suspect]
     Indication: PROPHYLAXIS

REACTIONS (6)
  - Haemorrhage [Unknown]
  - Haemorrhagic diathesis [Unknown]
  - Gait disturbance [Unknown]
  - Arthralgia [Unknown]
  - Chondropathy [Unknown]
  - Haemarthrosis [Unknown]
